FAERS Safety Report 19436788 (Version 1)
Quarter: 2021Q2

REPORT INFORMATION
  Report Type: Spontaneous
  Country: US (occurrence: US)
  Receive Date: 20210618
  Receipt Date: 20210618
  Transmission Date: 20210717
  Serious: No
  Sender: FDA-Public Use
  Company Number: US-ORGANON-O2106USA000911

PATIENT
  Age: 37 Year
  Sex: Female

DRUGS (7)
  1. NOVAREL [Concomitant]
     Active Substance: CHORIOGONADOTROPIN ALFA
     Dosage: UNK
  2. CRYSELLE [Concomitant]
     Active Substance: ETHINYL ESTRADIOL\NORGESTREL
     Dosage: UNK
  3. FOLLISTIM AQ [Suspect]
     Active Substance: FOLLITROPIN
     Indication: INFERTILITY FEMALE
     Dosage: 75 TO 450 UNITS EVERY DAY (STRENGTH: 300 IU/0.36 ML)
     Route: 058
     Dates: start: 20210226
  4. FOLLISTIM AQ [Suspect]
     Active Substance: FOLLITROPIN
  5. LEUPROLIDE [LEUPRORELIN] [Concomitant]
     Active Substance: LEUPROLIDE ACETATE
     Dosage: UNK
  6. TOPIRAMATE. [Concomitant]
     Active Substance: TOPIRAMATE
     Dosage: UNK
  7. RIZATRIPTAN. [Concomitant]
     Active Substance: RIZATRIPTAN
     Dosage: UNK

REACTIONS (5)
  - Weight increased [Unknown]
  - Ovarian cyst [Unknown]
  - Emotional disorder [Unknown]
  - Hot flush [Unknown]
  - Migraine [Unknown]

NARRATIVE: CASE EVENT DATE: 2021
